FAERS Safety Report 4450243-6 (Version None)
Quarter: 2004Q3

REPORT INFORMATION
  Report Type: 
  Country: None (occurrence: None)
  Receive Date: 20040914
  Receipt Date: 20040903
  Transmission Date: 20050211
  Serious: Yes (Other)
  Sender: FDA-Public Use
  Company Number: 2004232350GB

PATIENT
  Age: 62 Year
  Sex: Male
  Weight: 82.6 kg

DRUGS (3)
  1. XALATAN [Suspect]
     Indication: GLAUCOMA
     Dosage: QD, OPHTHALMIC
     Route: 047
     Dates: start: 20040202, end: 20040216
  2. ASPIRIN [Concomitant]
  3. MULVITAMINS (ERGOCALCIFEROL, RETINOL, PANTHENOL) [Concomitant]

REACTIONS (1)
  - PALPITATIONS [None]
